FAERS Safety Report 9368286 (Version 2)
Quarter: 2013Q3

REPORT INFORMATION
  Report Type: Spontaneous
  Country: US (occurrence: US)
  Receive Date: 20130625
  Receipt Date: 20130822
  Transmission Date: 20140515
  Serious: Yes (Hospitalization)
  Sender: FDA-Public Use
  Company Number: US-009507513-1306USA010115

PATIENT
  Age: 45 Year
  Sex: Male

DRUGS (3)
  1. VICTRELIS [Suspect]
     Indication: CHRONIC HEPATITIS C
     Dosage: 800 MG, TID
     Route: 048
     Dates: start: 201304, end: 201304
  2. REBETOL [Suspect]
  3. PEGASYS [Suspect]

REACTIONS (2)
  - Colitis [Unknown]
  - Abdominal pain upper [Unknown]
